FAERS Safety Report 4380021-8 (Version None)
Quarter: 2004Q2

REPORT INFORMATION
  Report Type: 
  Country: None (occurrence: None)
  Receive Date: 20040614
  Receipt Date: 20040420
  Transmission Date: 20050107
  Serious: No
  Sender: FDA-Public Use
  Company Number: 2004-BP-03090BP(0)

PATIENT
  Age: 74 Year
  Sex: Female

DRUGS (12)
  1. SPIRIVA [Suspect]
     Indication: CHRONIC OBSTRUCTIVE AIRWAYS DISEASE
     Dosage: 18 MCG (18 MCG,18 MCG DAILY), IH
     Dates: start: 20040405, end: 20040413
  2. IPRATROPRIUM BROMIDE (IPRATROPIUM BROMIDE) [Concomitant]
  3. XOPENEX [Concomitant]
  4. PRILOSEC [Concomitant]
  5. THEO-DUR [Concomitant]
  6. XANAX [Concomitant]
  7. COUMADIN [Concomitant]
  8. LIPITOR [Concomitant]
  9. PREMARIN [Concomitant]
  10. SINGULAIR [Concomitant]
  11. AUGMENTIN [Concomitant]
  12. OXYGEN (OXYGEN) [Concomitant]

REACTIONS (1)
  - DYSPNOEA [None]
